FAERS Safety Report 14826453 (Version 1)
Quarter: 2018Q2

REPORT INFORMATION
  Report Type: Report from Study
  Country: BR (occurrence: BR)
  Receive Date: 20180430
  Receipt Date: 20180430
  Transmission Date: 20180711
  Serious: Yes (Other)
  Sender: FDA-Public Use
  Company Number: PHHY2018BR071926

PATIENT
  Sex: Female
  Weight: 79 kg

DRUGS (2)
  1. TIMOPTOL [Concomitant]
     Active Substance: TIMOLOL
     Indication: GLAUCOMA
     Dosage: 1 GTT, BID, TWICE A DAY
     Route: 047
     Dates: start: 1991
  2. VITALUX PLUS OMEGA 03 (ALC) [Suspect]
     Active Substance: MINERALS\OMEGA-3 FATTY ACIDS\VITAMINS
     Indication: EYE DISORDER
     Dosage: QD
     Route: 048

REACTIONS (3)
  - Corneal graft rejection [Not Recovered/Not Resolved]
  - Eye opacity [Not Recovered/Not Resolved]
  - Eye pain [Unknown]
